FAERS Safety Report 5382447-2 (Version None)
Quarter: 2007Q3

REPORT INFORMATION
  Report Type: 
  Country: None (occurrence: None)
  Receive Date: 20070705
  Receipt Date: 20070131
  Transmission Date: 20080115
  Serious: Yes (Hospitalization)
  Sender: FDA-Public Use
  Company Number: WAES 0702USA00276

PATIENT
  Sex: Female

DRUGS (4)
  1. HYZAAR [Suspect]
     Dosage: PO
     Route: 048
  2. NORVASC [Suspect]
  3. GRAPEFRUIT UNK [Suspect]
  4. THERAPY UNSPECIFIED [Suspect]

REACTIONS (2)
  - HYPOTENSION [None]
  - MYOCARDIAL INFARCTION [None]
